FAERS Safety Report 16651417 (Version 1)
Quarter: 2019Q3

REPORT INFORMATION
  Report Type: Spontaneous
  Country: FR (occurrence: FR)
  Receive Date: 20190731
  Receipt Date: 20190731
  Transmission Date: 20191004
  Serious: Yes (Other)
  Sender: FDA-Public Use
  Company Number: FR-PFIZER INC-2019322976

PATIENT
  Age: 62 Year
  Sex: Male

DRUGS (4)
  1. CYCLOPHOSPHAMIDE. [Suspect]
     Active Substance: CYCLOPHOSPHAMIDE
     Indication: MALIGNANT NEOPLASM OF PLEURA
     Dosage: UNK, CYCLIC (EVERY 4 WEEKS)
     Dates: start: 199401
  2. DOXORUBICIN HCL [Suspect]
     Active Substance: DOXORUBICIN HYDROCHLORIDE
     Indication: MALIGNANT NEOPLASM OF PLEURA
     Dosage: UNK, CYCLIC (EVERY 4 WEEKS)
     Dates: start: 199401
  3. CISPLATIN. [Suspect]
     Active Substance: CISPLATIN
     Indication: MALIGNANT NEOPLASM OF PLEURA
     Dosage: UNK, CYCLIC (EVERY 4 WEEKS)
     Dates: start: 199401
  4. ETOPOSIDE. [Suspect]
     Active Substance: ETOPOSIDE
     Indication: MALIGNANT NEOPLASM OF PLEURA
     Dosage: UNK, CYCLIC (EVERY 4 WEEKS)
     Dates: start: 199401

REACTIONS (5)
  - Intervertebral discitis [Recovered/Resolved]
  - Myalgia [Not Recovered/Not Resolved]
  - Product use in unapproved indication [Unknown]
  - Off label use [Unknown]
  - Polyneuropathy in malignant disease [Not Recovered/Not Resolved]

NARRATIVE: CASE EVENT DATE: 1994
